FAERS Safety Report 26106473 (Version 1)
Quarter: 2025Q4

REPORT INFORMATION
  Report Type: Spontaneous
  Country: CN (occurrence: None)
  Receive Date: 20251201
  Receipt Date: 20251201
  Transmission Date: 20260118
  Serious: Yes (Hospitalization)
  Sender: JIANGSU HANSOH PHARMACEUTICAL GROUP CO., LTD.
  Company Number: CN-Hansoh-20252190021996

PATIENT
  Sex: Female

DRUGS (10)
  1. PEMETREXED DISODIUM [Suspect]
     Active Substance: PEMETREXED DISODIUM
     Indication: Lung adenocarcinoma stage IV
     Dosage: 815 MG, EVERY 3 WEEKS
     Route: 041
     Dates: start: 20250425, end: 20250425
  2. PEMETREXED DISODIUM [Suspect]
     Active Substance: PEMETREXED DISODIUM
     Dosage: 815 MG, EVERY 3 WEEKS
     Route: 041
     Dates: start: 20250516, end: 20250516
  3. PEMETREXED DISODIUM [Suspect]
     Active Substance: PEMETREXED DISODIUM
     Dosage: 612.5 MG, Q3W
     Route: 041
     Dates: start: 20250627, end: 20250627
  4. PEMETREXED DISODIUM [Suspect]
     Active Substance: PEMETREXED DISODIUM
     Dosage: 612.5 MG, Q3W
     Route: 041
     Dates: start: 20250718, end: 20250718
  5. CARBOPLATIN [Suspect]
     Active Substance: CARBOPLATIN
     Indication: Lung adenocarcinoma stage IV
     Dosage: 738 MG, EVERY 3 WEEKS
     Route: 041
     Dates: start: 20250425, end: 20250425
  6. CARBOPLATIN [Suspect]
     Active Substance: CARBOPLATIN
     Dosage: 545 MG, Q3W
     Route: 041
     Dates: start: 20250516, end: 20250516
  7. CARBOPLATIN [Suspect]
     Active Substance: CARBOPLATIN
     Dosage: 409 MG, EVERY 3 WEEKS
     Route: 041
     Dates: start: 20250627, end: 20250627
  8. PEMBROLIZUMAB [Suspect]
     Active Substance: PEMBROLIZUMAB
     Indication: Lung adenocarcinoma stage IV
     Dosage: 400 MG, Q6ZHOU
     Route: 041
     Dates: start: 20250425, end: 20250425
  9. PEMBROLIZUMAB [Suspect]
     Active Substance: PEMBROLIZUMAB
     Dosage: 400 MG, Q6ZHOU
     Route: 041
     Dates: start: 20250606, end: 20250606
  10. PEMBROLIZUMAB [Suspect]
     Active Substance: PEMBROLIZUMAB
     Dosage: 400 MG, Q6ZHOU
     Route: 041
     Dates: start: 20250718, end: 20250718

REACTIONS (5)
  - Gastroenteritis [Recovered/Resolved]
  - Neutrophil count decreased [Unknown]
  - White blood cell count decreased [Recovered/Resolved]
  - Haemoglobin decreased [Unknown]
  - Platelet count decreased [Unknown]

NARRATIVE: CASE EVENT DATE: 20250606
